FAERS Safety Report 6387242-3 (Version None)
Quarter: 2009Q3

REPORT INFORMATION
  Report Type: 
  Country: None (occurrence: None)
  Receive Date: 20090928
  Receipt Date: 20090914
  Transmission Date: 20100115
  Serious: Yes (Death, Hospitalization, Other)
  Sender: FDA-Public Use
  Company Number: 2009AL000346

PATIENT
  Age: 55 Year
  Sex: Male
  Weight: 115.2136 kg

DRUGS (31)
  1. DIGOXIN [Suspect]
     Indication: CARDIAC FAILURE CONGESTIVE
     Dosage: 0.125MG, DAILY, PO
     Route: 048
     Dates: start: 20080812
  2. DIGOXIN [Suspect]
     Dosage: 0.25MG, DAILY, PO
     Route: 048
     Dates: end: 20080620
  3. AMIODARONE [Concomitant]
  4. AMLODIPINE [Concomitant]
  5. BUPROPION HCL [Concomitant]
  6. CARVEDILOL [Concomitant]
  7. OXYCODONE HCL AND ACETAMINOPHEN [Concomitant]
  8. FLEXERIL [Concomitant]
  9. LASIX [Concomitant]
  10. LISINOPRIL [Concomitant]
  11. MIRAPEX [Concomitant]
  12. POTASSIUM CHLORIDE [Concomitant]
  13. SPIRIVA [Concomitant]
  14. VIAGRA [Concomitant]
  15. WARFARIN SODIUM [Concomitant]
  16. SODIUM [Concomitant]
  17. XANAX [Concomitant]
  18. ZAROXOLYN [Concomitant]
  19. ATACAND [Concomitant]
  20. OXYCODONE HCL AND ACETAMINOPHEN [Concomitant]
  21. PERCOCET [Concomitant]
  22. LIDODERM [Concomitant]
  23. COREG [Concomitant]
  24. PRINIVIL [Concomitant]
  25. MELOXICAM [Concomitant]
  26. FUROSEMIDE [Concomitant]
  27. ALPRAZOLAM [Concomitant]
  28. BUPROPION HCL [Concomitant]
  29. AMRIX [Concomitant]
  30. ROBAXIN [Concomitant]
  31. CARTIA XT [Concomitant]

REACTIONS (37)
  - ABDOMINAL PAIN [None]
  - ACCIDENT [None]
  - ANAEMIA [None]
  - ARTHRITIS [None]
  - ATRIAL FIBRILLATION [None]
  - BACK PAIN [None]
  - BUNDLE BRANCH BLOCK LEFT [None]
  - CARDIAC MURMUR [None]
  - CHRONIC OBSTRUCTIVE PULMONARY DISEASE [None]
  - COLD SWEAT [None]
  - CONGESTIVE CARDIOMYOPATHY [None]
  - DEPRESSION [None]
  - EPIDIDYMITIS [None]
  - HAEMATOCHEZIA [None]
  - HEADACHE [None]
  - HEART RATE IRREGULAR [None]
  - INSOMNIA [None]
  - LUMBAR RADICULOPATHY [None]
  - MUSCLE SPASMS [None]
  - MUSCULAR WEAKNESS [None]
  - MUSCULOSKELETAL PAIN [None]
  - NEPHROPATHY [None]
  - OEDEMA PERIPHERAL [None]
  - OVERDOSE [None]
  - PAIN [None]
  - PAIN IN EXTREMITY [None]
  - PLEURAL EFFUSION [None]
  - PRODUCT SHAPE ISSUE [None]
  - REFUSAL OF TREATMENT BY PATIENT [None]
  - RENAL FAILURE [None]
  - RESTLESS LEGS SYNDROME [None]
  - RHINITIS ALLERGIC [None]
  - SICK SINUS SYNDROME [None]
  - THERAPEUTIC AGENT TOXICITY [None]
  - VISUAL IMPAIRMENT [None]
  - WEIGHT DECREASED [None]
  - WEIGHT INCREASED [None]
